FAERS Safety Report 4743929-7 (Version None)
Quarter: 2005Q3

REPORT INFORMATION
  Report Type: 
  Country: None (occurrence: None)
  Receive Date: 20050812
  Receipt Date: 20050701
  Transmission Date: 20060218
  Serious: Yes (Other)
  Sender: FDA-Public Use
  Company Number: IE-ROCHE-409618

PATIENT
  Age: 17 Year
  Sex: Female
  Weight: 72 kg

DRUGS (3)
  1. ROACCUTANE [Suspect]
     Indication: ACNE
     Dosage: TAKEN DAILY.
     Route: 048
     Dates: start: 20050401
  2. ROACCUTANE [Suspect]
     Dosage: TAKEN DAILY.
     Route: 048
  3. ROACCUTANE [Suspect]
     Dosage: TAKEN DAILY.
     Route: 048

REACTIONS (3)
  - DIZZINESS [None]
  - DYSPNOEA [None]
  - DYSPNOEA EXERTIONAL [None]
